FAERS Safety Report 5124062-1 (Version None)
Quarter: 2006Q4

REPORT INFORMATION
  Report Type: 
  Country: None (occurrence: None)
  Receive Date: 20061010
  Receipt Date: 20051005
  Transmission Date: 20070319
  Serious: Yes (Hospitalization)
  Sender: FDA-Public Use
  Company Number: US-BRISTOL-MYERS SQUIBB COMPANY-13133608

PATIENT
  Age: 78 Year
  Sex: Male
  Weight: 45 kg

DRUGS (17)
  1. AVAPRO [Suspect]
     Indication: HYPERTENSION
     Dosage: DURATION: 3-4 YEARS, DISCONTINUED 2-3 YEARS AGO
  2. MIACALCIN [Concomitant]
  3. PREDNISONE [Concomitant]
  4. PEPTO-BISMOL [Concomitant]
  5. METAMUCIL [Concomitant]
  6. QUESTRAN [Concomitant]
     Dosage: 1 PACKAGE DAILY
  7. ASPIRIN [Concomitant]
  8. ACIDOPHILUS [Concomitant]
  9. UNIPHYL [Concomitant]
  10. ALLOPURINOL [Concomitant]
  11. FOSAMAX [Concomitant]
  12. METOPROLOL TARTRATE [Concomitant]
  13. ISOSORBIDE MONONITRATE [Concomitant]
  14. SPIRIVA [Concomitant]
     Dosage: 1 PUFF DAILY
     Route: 055
  15. ADVAIR DISKUS 100/50 [Concomitant]
     Dosage: 2 PUFFS DAILY
     Route: 055
  16. ALUPENT [Concomitant]
     Dosage: 2 PUFFS 4 TIMES DAILY
     Route: 055
  17. OXYGEN [Concomitant]
     Dosage: 1 LITER/MINUTE AT NIGHT AS NEEDED

REACTIONS (2)
  - FLUSHING [None]
  - RENAL FAILURE [None]
